FAERS Safety Report 5682317-6 (Version None)
Quarter: 2008Q1

REPORT INFORMATION
  Report Type: 
  Country: None (occurrence: None)
  Receive Date: 20080327
  Receipt Date: 20070320
  Transmission Date: 20080703
  Serious: No
  Sender: FDA-Public Use
  Company Number: US-BAUSCH-2007BL000893

PATIENT
  Age: 54 Year
  Sex: Female
  Weight: 54 kg

DRUGS (9)
  1. ALREX [Suspect]
     Indication: KERATOCONJUNCTIVITIS SICCA
     Route: 047
     Dates: start: 20070219, end: 20070225
  2. ALREX [Suspect]
     Indication: OFF LABEL USE
     Route: 047
     Dates: start: 20070219, end: 20070225
  3. ALREX [Suspect]
     Route: 047
     Dates: start: 20070226, end: 20070304
  4. ALREX [Suspect]
     Route: 047
     Dates: start: 20070226, end: 20070304
  5. ALREX [Suspect]
     Route: 047
     Dates: start: 20070305, end: 20070311
  6. ALREX [Suspect]
     Route: 047
     Dates: start: 20070305, end: 20070311
  7. ALREX [Suspect]
     Route: 047
     Dates: start: 20070312, end: 20070314
  8. ALREX [Suspect]
     Route: 047
     Dates: start: 20070312, end: 20070314
  9. RESTASIS [Concomitant]
     Indication: KERATOCONJUNCTIVITIS SICCA
     Route: 047
     Dates: start: 20061001

REACTIONS (1)
  - DERMATITIS CONTACT [None]
